FAERS Safety Report 8911565 (Version 3)
Quarter: 2013Q1

REPORT INFORMATION
  Report Type: Report from Study
  Country: US (occurrence: US)
  Receive Date: 20121116
  Receipt Date: 20130103
  Transmission Date: 20140127
  Serious: Yes (Hospitalization)
  Sender: FDA-Public Use
  Company Number: US-TEVA-369710USA

PATIENT
  Age: 59 Year
  Sex: Male

DRUGS (4)
  1. FLUOROURACIL [Suspect]
     Indication: NEOPLASM
     Dosage: 2400 MG/M2 ON DAYS 1-3 AND 1S-17 OF EACH 28 DAY CYCLE
     Dates: start: 20120910, end: 20121011
  2. FOLINIC ACID [Suspect]
     Indication: NEOPLASM
     Dosage: 400 MG/M2 ON DAY 1 OF EACH 28 DAY CYCLE
     Dates: start: 20120910, end: 20121011
  3. IRINOTECAN [Suspect]
     Indication: NEOPLASM
     Dosage: 180 MG/M2 ON DAY 1 OF EACH 28 DAY CYCLE
     Route: 042
     Dates: start: 20120910, end: 20121011
  4. LOSARTAN [Concomitant]
     Indication: HYPERTENSION
     Dosage: 100/25 MG
     Dates: start: 2010, end: 20121011

REACTIONS (1)
  - Dyspnoea [Recovered/Resolved]
